FAERS Safety Report 13486178 (Version 1)
Quarter: 2017Q2

REPORT INFORMATION
  Report Type: Spontaneous
  Country: US (occurrence: US)
  Receive Date: 20170426
  Receipt Date: 20170426
  Transmission Date: 20170830
  Serious: Yes (Hospitalization, Other)
  Sender: FDA-Public Use
  Company Number: US-LUNDBECK-DKLU2029724

PATIENT
  Sex: Female

DRUGS (2)
  1. NORTHERA [Suspect]
     Active Substance: DROXIDOPA
     Indication: AUTONOMIC FAILURE SYNDROME
     Route: 065
  2. NORTHERA [Suspect]
     Active Substance: DROXIDOPA
     Indication: NEUROPATHY PERIPHERAL
     Dosage: OVERDOSE: 2400MG
     Route: 065

REACTIONS (5)
  - Diplopia [Unknown]
  - Prescribed overdose [Unknown]
  - Paraesthesia [Unknown]
  - Hypotension [Unknown]
  - Deafness [Unknown]
